FAERS Safety Report 9968329 (Version 1)
Quarter: 2014Q1

REPORT INFORMATION
  Report Type: Report from Study
  Country: US (occurrence: US)
  Receive Date: 20140306
  Receipt Date: 20140306
  Transmission Date: 20141002
  Serious: No
  Sender: FDA-Public Use
  Company Number: US-ABBVIE-13P-163-1143005-00

PATIENT
  Age: 66 Year
  Sex: Female
  Weight: 123.03 kg

DRUGS (9)
  1. HUMIRA [Suspect]
     Indication: ANKYLOSING SPONDYLITIS
     Dates: start: 201307
  2. ENFORGE [Concomitant]
     Indication: HYPERTENSION
  3. FOLIC ACID [Concomitant]
     Indication: ANKYLOSING SPONDYLITIS
  4. HCTZ [Concomitant]
     Indication: HYPERTENSION
  5. MELOXICAM [Concomitant]
     Indication: ANKYLOSING SPONDYLITIS
  6. METHOTREXATE [Concomitant]
     Indication: ANKYLOSING SPONDYLITIS
  7. NEXIUM [Concomitant]
     Indication: GASTROOESOPHAGEAL REFLUX DISEASE
  8. VITAMIN D [Concomitant]
     Indication: ANKYLOSING SPONDYLITIS
  9. PREDNISONE [Concomitant]
     Indication: ANKYLOSING SPONDYLITIS

REACTIONS (6)
  - Movement disorder [Not Recovered/Not Resolved]
  - Drug ineffective [Not Recovered/Not Resolved]
  - Pain [Not Recovered/Not Resolved]
  - Joint swelling [Not Recovered/Not Resolved]
  - Skin warm [Not Recovered/Not Resolved]
  - Skin discolouration [Not Recovered/Not Resolved]
